FAERS Safety Report 5344226-1 (Version None)
Quarter: 2007Q2

REPORT INFORMATION
  Report Type: 
  Country: None (occurrence: None)
  Receive Date: 20070604
  Receipt Date: 20070530
  Transmission Date: 20071010
  Serious: Yes (Life-Threatening, Hospitalization)
  Sender: FDA-Public Use
  Company Number: US-ASTRAZENECA-2007UW13205

PATIENT
  Age: 30 Year
  Sex: Male

DRUGS (9)
  1. SEROQUEL [Suspect]
     Route: 048
  2. SEROQUEL [Suspect]
     Route: 048
  3. WELLBUTRIN [Suspect]
  4. WELLBUTRIN [Suspect]
  5. DEPAKOTE [Suspect]
     Dosage: 500 MG AM, 1000 MG PM
  6. DEPAKOTE [Suspect]
  7. VALIUM [Suspect]
  8. VALIUM [Suspect]
  9. BETA BLOCKER [Concomitant]

REACTIONS (1)
  - PERICARDIAL EFFUSION [None]
